FAERS Safety Report 18072828 (Version 1)
Quarter: 2020Q3

REPORT INFORMATION
  Report Type: Spontaneous
  Country: US (occurrence: US)
  Receive Date: 20200727
  Receipt Date: 20200727
  Transmission Date: 20201103
  Serious: No
  Sender: FDA-Public Use
  Company Number: None

PATIENT
  Age: 47 Year
  Sex: Male
  Weight: 76.5 kg

DRUGS (1)
  1. LEVAQUIN [Suspect]
     Active Substance: LEVOFLOXACIN
     Indication: PROSTATITIS
     Dosage: ?          QUANTITY:14 CAPSULE(S);?
     Route: 048

REACTIONS (11)
  - Nerve injury [None]
  - Arthralgia [None]
  - Pain [None]
  - Discomfort [None]
  - Anxiety [None]
  - Depression [None]
  - Burning sensation [None]
  - Eye pain [None]
  - Fatigue [None]
  - Arthropathy [None]
  - Facial pain [None]

NARRATIVE: CASE EVENT DATE: 20200413
